FAERS Safety Report 8584672 (Version 4)
Quarter: 2012Q4

REPORT INFORMATION
  Report Type: Report from Study
  Country: US (occurrence: US)
  Receive Date: 20120529
  Receipt Date: 20120924
  Transmission Date: 20130627
  Serious: Yes (Hospitalization)
  Sender: FDA-Public Use
  Company Number: US-JNJFOC-20120516184

PATIENT
  Age: 15 Year
  Sex: Female
  Weight: 56 kg

DRUGS (24)
  1. INFLIXIMAB, RECOMBINANT [Suspect]
     Indication: INFLAMMATORY BOWEL DISEASE
     Route: 042
     Dates: start: 201205
  2. INFLIXIMAB, RECOMBINANT [Suspect]
     Indication: INFLAMMATORY BOWEL DISEASE
     Route: 042
     Dates: start: 20120402
  3. INFLIXIMAB, RECOMBINANT [Suspect]
     Indication: INFLAMMATORY BOWEL DISEASE
     Route: 042
     Dates: start: 20071114
  4. METHOTREXATE [Concomitant]
  5. FLORASTOR [Concomitant]
  6. PROBIOTICS [Concomitant]
  7. ALBUTEROL [Concomitant]
  8. AMITRIPTYLINE [Concomitant]
  9. BACTROBAN [Concomitant]
  10. ENDOCET [Concomitant]
  11. FERROUS SULFATE [Concomitant]
  12. FLAGYL [Concomitant]
  13. FOLIC ACID [Concomitant]
  14. DERMAZINC [Concomitant]
  15. CLOBETASOL [Concomitant]
  16. LIDEX [Concomitant]
  17. SINGULAIR [Concomitant]
  18. MVI [Concomitant]
  19. MUPIROCIN [Concomitant]
  20. FISH OIL [Concomitant]
  21. OMEPRAZOLE [Concomitant]
  22. VITAMIN D [Concomitant]
  23. CEFZIL [Concomitant]
  24. FLUOCINOLONE [Concomitant]
     Route: 061

REACTIONS (1)
  - Crohn^s disease [Recovered/Resolved]
